FAERS Safety Report 4298168-3 (Version None)
Quarter: 2004Q1

REPORT INFORMATION
  Report Type: 
  Country: None (occurrence: None)
  Receive Date: 20040218
  Receipt Date: 20030409
  Transmission Date: 20041129
  Serious: Yes (Other)
  Sender: FDA-Public Use
  Company Number: US-BRISTOL-MYERS SQUIBB COMPANY-12242186

PATIENT
  Sex: Female

DRUGS (3)
  1. STADOL [Suspect]
     Route: 045
     Dates: start: 19961025
  2. ADIPEX [Concomitant]
  3. TRIPHASIL-21 [Concomitant]

REACTIONS (1)
  - DEPENDENCE [None]
